FAERS Safety Report 9299525 (Version 2)
Quarter: 2013Q2

REPORT INFORMATION
  Report Type: Report from Study
  Country: CA (occurrence: CA)
  Receive Date: 20130521
  Receipt Date: 20130529
  Transmission Date: 20140414
  Serious: Yes (Other)
  Sender: FDA-Public Use
  Company Number: CA-ROCHE-1225915

PATIENT
  Age: 82 Year
  Sex: Female
  Weight: 54.2 kg

DRUGS (5)
  1. RITUXAN [Suspect]
     Indication: B-CELL LYMPHOMA
     Route: 042
     Dates: start: 201211
  2. RAMIPRIL [Concomitant]
  3. DILTIAZEM [Concomitant]
  4. ACETYLSALICYLIC ACID [Concomitant]
  5. RISEDRONATE [Concomitant]

REACTIONS (1)
  - Upper extremity mass [Not Recovered/Not Resolved]
